FAERS Safety Report 6641360-0 (Version None)
Quarter: 2010Q1

REPORT INFORMATION
  Report Type: 
  Country: None (occurrence: None)
  Receive Date: 20100318
  Receipt Date: 20100314
  Transmission Date: 20100710
  Serious: Yes (Life-Threatening, Hospitalization, Other)
  Sender: FDA-Public Use
  Company Number: PHHY2010PL15657

PATIENT
  Sex: Male
  Weight: 54 kg

DRUGS (4)
  1. MYFORTIC [Suspect]
     Indication: RENAL TRANSPLANT
     Dosage: 1440 1440 (UNITS UNSPECIFIED) /DAY
     Route: 048
     Dates: start: 20090830
  2. MYFORTIC [Suspect]
     Indication: IMMUNOSUPPRESSION
  3. PROGRAF [Concomitant]
     Indication: IMMUNOSUPPRESSION
     Dosage: 10 MG, UNK
     Dates: start: 20090830
  4. ENCORTON [Concomitant]
     Indication: IMMUNOSUPPRESSION
     Dosage: 10 MG, UNK
     Dates: start: 20090830

REACTIONS (6)
  - CIRCULATORY COLLAPSE [None]
  - GUILLAIN-BARRE SYNDROME [None]
  - LOSS OF CONSCIOUSNESS [None]
  - QUADRIPARESIS [None]
  - RESPIRATORY FAILURE [None]
  - SEDATION [None]
